FAERS Safety Report 9618072 (Version 5)
Quarter: 2015Q1

REPORT INFORMATION
  Report Type: Report from Study
  Country: GB (occurrence: GB)
  Receive Date: 20131012
  Receipt Date: 20150224
  Transmission Date: 20150721
  Serious: Yes (Hospitalization, Other)
  Sender: FDA-Public Use
  Company Number: GB-ACCORD-019739

PATIENT
  Age: 58 Year
  Sex: Male

DRUGS (8)
  1. INCIVO [Suspect]
     Active Substance: TELAPREVIR
     Indication: HEPATITIS C
     Route: 048
     Dates: start: 20130531, end: 20130805
  2. COPEGUS [Suspect]
     Active Substance: RIBAVIRIN
     Indication: HEPATITIS C
     Dosage: 1000MG(5-JUN TO 10-JUN), 800MG(10-JUN TO 17-JUN), 400MG(17-JUN TO 25-JUN) ALL IN 2013.
     Route: 048
     Dates: start: 20130503, end: 20130605
  3. TRAMADOL/TRAMADOL HYDROCHLORIDE [Suspect]
     Active Substance: TRAMADOL HYDROCHLORIDE
     Indication: PAIN
     Dosage: 150 MG TOTAL DAILY DOSE
     Route: 048
     Dates: start: 20130805, end: 20130827
  4. FUROSEMIDE. [Concomitant]
     Active Substance: FUROSEMIDE
     Indication: ASCITES
     Route: 048
     Dates: start: 20120102
  5. FLUOXETINE [Concomitant]
     Active Substance: FLUOXETINE\FLUOXETINE HYDROCHLORIDE
     Indication: DEPRESSION
     Route: 048
     Dates: start: 20130417
  6. PROPRANOLOL [Concomitant]
     Active Substance: PROPRANOLOL\PROPRANOLOL HYDROCHLORIDE
     Indication: ASCITES
     Route: 048
     Dates: start: 20120102
  7. PARACETAMOL [Concomitant]
     Active Substance: ACETAMINOPHEN
     Indication: ANALGESIC THERAPY
     Route: 048
  8. PEGINTERFERON ALFA-2B [Suspect]
     Active Substance: PEGINTERFERON ALFA-2B
     Indication: HEPATITIS C
     Dosage: DOSAGE FORM: TABLET
     Route: 048
     Dates: start: 20130419, end: 20130823

REACTIONS (10)
  - Hallucination [Recovered/Resolved]
  - Malnutrition [Unknown]
  - Anaemia [Recovered/Resolved]
  - Nausea [Unknown]
  - Thrombocytopenia [Recovered/Resolved]
  - Oedema peripheral [Unknown]
  - Psychotic disorder [Recovered/Resolved]
  - Hypokalaemia [Unknown]
  - Memory impairment [Unknown]
  - Haemorrhoids [Unknown]

NARRATIVE: CASE EVENT DATE: 20130605
